FAERS Safety Report 6527504-X (Version None)
Quarter: 2010Q1

REPORT INFORMATION
  Report Type: 
  Country: None (occurrence: None)
  Receive Date: 20100105
  Receipt Date: 20091222
  Transmission Date: 20100710
  Serious: Yes (Other)
  Sender: FDA-Public Use
  Company Number: FR-MYLANLABS-2009S1021821

PATIENT
  Age: 46 Year
  Sex: Female

DRUGS (4)
  1. CHLORPROMAZINE [Suspect]
     Indication: PSYCHOTIC DISORDER
  2. LOXAPINE [Suspect]
     Indication: PSYCHOTIC DISORDER
  3. TRIHEXYPHENIDYL HCL [Suspect]
     Indication: PSYCHOTIC DISORDER
  4. TROPATEPINE [Suspect]
     Indication: PSYCHOTIC DISORDER

REACTIONS (4)
  - ABDOMINAL COMPARTMENT SYNDROME [None]
  - GASTROINTESTINAL HYPOMOTILITY [None]
  - RENAL FAILURE ACUTE [None]
  - SHOCK [None]
